FAERS Safety Report 15495139 (Version 1)
Quarter: 2018Q4

REPORT INFORMATION
  Report Type: Spontaneous
  Country: FR (occurrence: FR)
  Receive Date: 20181012
  Receipt Date: 20181012
  Transmission Date: 20190205
  Serious: Yes (Hospitalization)
  Sender: FDA-Public Use
  Company Number: FR-009507513-1810FRA003460

PATIENT
  Age: 51 Year
  Sex: Female

DRUGS (1)
  1. KEYTRUDA [Suspect]
     Active Substance: PEMBROLIZUMAB
     Indication: MALIGNANT MELANOMA
     Dosage: 110 MG PER PERFUSION
     Route: 042
     Dates: start: 20161115, end: 20171006

REACTIONS (1)
  - Granulomatous lymphadenitis [Not Recovered/Not Resolved]

NARRATIVE: CASE EVENT DATE: 20170516
